FAERS Safety Report 9366529 (Version 1)
Quarter: 2013Q2

REPORT INFORMATION
  Report Type: Spontaneous
  Country: US (occurrence: US)
  Receive Date: 20130625
  Receipt Date: 20130625
  Transmission Date: 20140414
  Serious: No
  Sender: FDA-Public Use
  Company Number: US-MYLANLABS-2013S1006051

PATIENT
  Sex: Female
  Weight: 85.28 kg

DRUGS (5)
  1. ATORVASTATIN CALCIUM TABLETS [Suspect]
     Indication: BLOOD CHOLESTEROL
     Dosage: }5 YEARS
  2. TRILIPIX [Suspect]
     Indication: BLOOD CHOLESTEROL
     Dosage: 5 YEARS
     Dates: start: 2008
  3. METFORMIN [Concomitant]
     Indication: DIABETES MELLITUS
     Dosage: 2 IN ONE DAY
  4. AMLODIPINE [Concomitant]
     Indication: HYPERTENSION
  5. LOSARTAN [Concomitant]
     Indication: HYPERTENSION

REACTIONS (2)
  - Muscle spasms [Not Recovered/Not Resolved]
  - Insomnia [Not Recovered/Not Resolved]
